FAERS Safety Report 4313737-X (Version None)
Quarter: 2004Q1

REPORT INFORMATION
  Report Type: 
  Country: None (occurrence: None)
  Receive Date: 20040308
  Receipt Date: 20040210
  Transmission Date: 20041129
  Serious: Yes (Hospitalization)
  Sender: FDA-Public Use
  Company Number: US-BRISTOL-MYERS SQUIBB COMPANY-12500831

PATIENT
  Age: 57 Year

DRUGS (1)
  1. COUMADIN [Suspect]
     Indication: PROPHYLAXIS
     Route: 048

REACTIONS (6)
  - ATRIAL FIBRILLATION [None]
  - COUGH [None]
  - DYSPNOEA [None]
  - INTERNATIONAL NORMALISED RATIO ABNORMAL [None]
  - PNEUMONIA [None]
  - RENAL FAILURE [None]
